FAERS Safety Report 23610698 (Version 1)
Quarter: 2024Q1

REPORT INFORMATION
  Report Type: Spontaneous
  Country: US (occurrence: None)
  Receive Date: 20240307
  Receipt Date: 20240307
  Transmission Date: 20240410
  Serious: Yes (unspecified)
  Sender: FDA-Public Use
  Company Number: None

PATIENT
  Age: 61 Year
  Sex: Female

DRUGS (1)
  1. OTEZLA [Suspect]
     Active Substance: APREMILAST
     Indication: Psoriasis
     Dosage: OTHER QUANTITY : UP TO 30 MG;?FREQUENCY : TWICE A DAY;?

REACTIONS (5)
  - Abdominal pain [None]
  - Diarrhoea [None]
  - Blood pressure decreased [None]
  - Heart rate decreased [None]
  - Nausea [None]
